FAERS Safety Report 16353360 (Version 4)
Quarter: 2020Q3

REPORT INFORMATION
  Report Type: Spontaneous
  Country: US (occurrence: US)
  Receive Date: 20190524
  Receipt Date: 20200706
  Transmission Date: 20201102
  Serious: Yes (Other)
  Sender: FDA-Public Use
  Company Number: US-009507513-1905USA007892

PATIENT
  Age: 53 Year
  Sex: Female

DRUGS (7)
  1. CARBIDOPA (+) LEVODOPA [Suspect]
     Active Substance: CARBIDOPA\LEVODOPA
     Indication: PARKINSON^S DISEASE
     Dosage: UNK
     Dates: start: 201901
  2. CARBIDOPA (+) LEVODOPA [Suspect]
     Active Substance: CARBIDOPA\LEVODOPA
     Indication: PARKINSON^S DISEASE
     Dosage: 2 PILLS 6 TIMES DAILY
     Route: 048
     Dates: start: 20190516
  3. SINEMET [Suspect]
     Active Substance: CARBIDOPA\LEVODOPA
     Indication: PARKINSON^S DISEASE
     Dosage: UNSPECIFIED NUMBER OF TABLETS ^DURING THE DAY^ / 1.5 TABLETS 6 TIMES DAILY (REPORTED AS PILLS)
     Route: 048
     Dates: start: 20181003
  4. NORTHERA [Concomitant]
     Active Substance: DROXIDOPA
     Indication: HYPOTENSION
     Dosage: UNK
  5. CLONAZEPAM. [Concomitant]
     Active Substance: CLONAZEPAM
     Indication: SLEEP DISORDER
     Dosage: UNK
  6. SINEMET CR [Suspect]
     Active Substance: CARBIDOPA\LEVODOPA
     Indication: PARKINSON^S DISEASE
     Dosage: UNSPECIFIED NUMBER OF TABLETS ^AT BEDTIME^
     Route: 048
     Dates: start: 2012
  7. CARBIDOPA (+) LEVODOPA [Suspect]
     Active Substance: CARBIDOPA\LEVODOPA
     Indication: PARKINSON^S DISEASE
     Dosage: UNK; START DATE: ^SEVERAL YEARS AGO^

REACTIONS (13)
  - Orthostatic hypertension [Not Recovered/Not Resolved]
  - Dysarthria [Not Recovered/Not Resolved]
  - Inappropriate schedule of product administration [Unknown]
  - Asthenia [Not Recovered/Not Resolved]
  - Orthostatic hypertension [Not Recovered/Not Resolved]
  - Product availability issue [Unknown]
  - Feeling abnormal [Not Recovered/Not Resolved]
  - Drug ineffective [Not Recovered/Not Resolved]
  - General physical health deterioration [Unknown]
  - Product dose omission issue [Unknown]
  - Loss of consciousness [Not Recovered/Not Resolved]
  - Loss of consciousness [Not Recovered/Not Resolved]
  - Incorrect dose administered [Unknown]

NARRATIVE: CASE EVENT DATE: 201901
